FAERS Safety Report 25311487 (Version 1)
Quarter: 2025Q2

REPORT INFORMATION
  Report Type: Spontaneous
  Country: US (occurrence: US)
  Receive Date: 20250514
  Receipt Date: 20250514
  Transmission Date: 20250716
  Serious: No
  Sender: ELI LILLY AND COMPANY
  Company Number: US-ELI_LILLY_AND_COMPANY-US202505009250

PATIENT
  Age: 80 Year
  Sex: Female

DRUGS (1)
  1. JAYPIRCA [Suspect]
     Active Substance: PIRTOBRUTINIB
     Indication: Product used for unknown indication
     Route: 065

REACTIONS (6)
  - Mobility decreased [Unknown]
  - Musculoskeletal stiffness [Unknown]
  - General physical health deterioration [Unknown]
  - Pain [Unknown]
  - Arthritis [Unknown]
  - Fatigue [Unknown]
